FAERS Safety Report 21214828 (Version 1)
Quarter: 2022Q3

REPORT INFORMATION
  Report Type: Spontaneous
  Country: US (occurrence: US)
  Receive Date: 20220816
  Receipt Date: 20220816
  Transmission Date: 20221027
  Serious: No
  Sender: FDA-Public Use
  Company Number: US-SA-SAC20220811001483

PATIENT
  Sex: Female

DRUGS (1)
  1. DUPIXENT [Suspect]
     Active Substance: DUPILUMAB
     Indication: Asthma
     Dosage: DOSE: 300 MG FREQUENCY: EVERY OTHER WEEK
     Route: 058

REACTIONS (4)
  - Pain [Unknown]
  - Dizziness [Unknown]
  - Nausea [Unknown]
  - Oropharyngeal pain [Unknown]
